FAERS Safety Report 17656031 (Version 1)
Quarter: 2020Q2

REPORT INFORMATION
  Report Type: Spontaneous
  Country: US (occurrence: US)
  Receive Date: 20200410
  Receipt Date: 20200410
  Transmission Date: 20200713
  Serious: Yes (Hospitalization)
  Sender: FDA-Public Use
  Company Number: None

PATIENT
  Age: 67 Year
  Sex: Female
  Weight: 59.4 kg

DRUGS (10)
  1. MEKINIST 1 MG [Concomitant]
  2. DIAZEPAM 5 MG [Concomitant]
     Active Substance: DIAZEPAM
  3. VITAMIN D (CHOLECALCIFEROL) 1000 UNIT [Concomitant]
  4. BRAFTOVI [Suspect]
     Active Substance: ENCORAFENIB
     Indication: MALIGNANT MELANOMA
     Route: 048
     Dates: start: 20200120
  5. SIMVASTATIN 40 MG [Concomitant]
     Active Substance: SIMVASTATIN
  6. MEKTOVI [Suspect]
     Active Substance: BINIMETINIB
     Indication: MALIGNANT MELANOMA
     Route: 048
     Dates: start: 20200120
  7. PREDNISONE 5 MG [Concomitant]
     Active Substance: PREDNISONE
  8. TAFINLAR [Concomitant]
     Active Substance: DABRAFENIB MESYLATE
  9. TERAZOSIN HCL 5 MG [Concomitant]
  10. LISINOPRIL-HYDROCHLOROTHIAZIDE [Concomitant]
     Active Substance: HYDROCHLOROTHIAZIDE\LISINOPRIL

REACTIONS (3)
  - Clostridium test positive [None]
  - Pyrexia [None]
  - Confusional state [None]

NARRATIVE: CASE EVENT DATE: 20200409
